FAERS Safety Report 4878094-9 (Version None)
Quarter: 2006Q1

REPORT INFORMATION
  Report Type: 
  Country: None (occurrence: None)
  Receive Date: 20060109
  Receipt Date: 20051229
  Transmission Date: 20060701
  Serious: Yes (Disabling)
  Sender: FDA-Public Use
  Company Number: 2006001887

PATIENT
  Sex: Female

DRUGS (2)
  1. XANAX [Suspect]
     Indication: MENTAL DISORDER
  2. ALPRAZOLAM [Suspect]
     Indication: MENTAL DISORDER

REACTIONS (1)
  - DRUG INEFFECTIVE [None]
